FAERS Safety Report 4894795-0 (Version None)
Quarter: 2006Q1

REPORT INFORMATION
  Report Type: 
  Country: None (occurrence: None)
  Receive Date: 20060126
  Receipt Date: 20060126
  Transmission Date: 20060701
  Serious: Yes (Hospitalization)
  Sender: FDA-Public Use
  Company Number: None

PATIENT
  Age: 61 Year
  Sex: Female

DRUGS (22)
  1. METHYLPREDNISOLONE [Suspect]
     Indication: CHRONIC OBSTRUCTIVE PULMONARY DISEASE
     Dosage: 125MG   IV  Q8H
     Route: 042
     Dates: start: 20051024, end: 20051026
  2. METHYLPREDNISOLONE [Suspect]
     Indication: MAJOR DEPRESSION
     Dosage: 125MG   IV  Q8H
     Route: 042
     Dates: start: 20051024, end: 20051026
  3. QUETIAPINE [Suspect]
     Indication: SCHIZOAFFECTIVE DISORDER
     Dosage: 150MG  PO QHS
     Route: 048
     Dates: start: 20050621, end: 20060125
  4. ALBUTEROL SULFATE AUTOHALER [Concomitant]
  5. ALBUTEROL SO4 [Concomitant]
  6. AMOXICILLIN / CLAV K [Concomitant]
  7. AZITHROMYCIN [Concomitant]
  8. CITALOPRAM HYDROBROMIDE [Concomitant]
  9. CYCLOBENZAPRINE HCL [Concomitant]
  10. DOXYCYCLINE HYCLATE [Concomitant]
  11. ENALAPRIL MALEATE [Concomitant]
  12. FLUCONAZOLE [Concomitant]
  13. FLUTICAS / SALMETEROL [Concomitant]
  14. GATIFLOXACIN [Concomitant]
  15. GUAIFENESIN [Concomitant]
  16. IBUPROFEN [Concomitant]
  17. MONTELUKAST NA [Concomitant]
  18. NICOTINE POLACRILEX [Concomitant]
  19. OMEPRAZOLE [Concomitant]
  20. OXYCODONE + ACETAMIN. [Concomitant]
  21. OYST CAL D [Concomitant]
  22. PREDNISONE [Concomitant]

REACTIONS (1)
  - BLOOD GLUCOSE INCREASED [None]
